FAERS Safety Report 8894887 (Version 1)
Quarter: 2012Q4

REPORT INFORMATION
  Report Type: 
  Country: US (occurrence: US)
  Receive Date: 20121107
  Receipt Date: 20121107
  Transmission Date: 20130627
  Serious: No
  Sender: FDA-Public Use
  Company Number: US-AMGEN-USASP2011049591

PATIENT
  Age: 55 Year
  Sex: Female
  Weight: 49.89 kg

DRUGS (11)
  1. ENBREL [Suspect]
     Indication: PRODUCT USED FOR UNKNOWN INDICATION
     Dosage: 50 mg, qwk
  2. SYNTHROID [Concomitant]
     Dosage: 100 mug, UNK
  3. CYMBALTA [Concomitant]
     Dosage: 30 mg, UNK
  4. TRAMADOL HCL [Concomitant]
     Dosage: 50 mg, UNK
  5. VALIUM                             /00017001/ [Concomitant]
     Dosage: 2 mg, UNK
  6. RECLAST [Concomitant]
  7. FISH OIL [Concomitant]
     Dosage: 1000 mg, UNK
  8. CENTRUM                            /00554501/ [Concomitant]
  9. CALTRATE + D                       /00188401/ [Concomitant]
  10. PRILOSEC                           /00661201/ [Concomitant]
     Dosage: 20 mg, UNK
  11. LIDOCAINE HCL [Concomitant]

REACTIONS (1)
  - Cystitis [Unknown]
